FAERS Safety Report 25534948 (Version 1)
Quarter: 2025Q3

REPORT INFORMATION
  Report Type: Spontaneous
  Country: US (occurrence: US)
  Receive Date: 20250709
  Receipt Date: 20250709
  Transmission Date: 20251021
  Serious: No
  Sender: CALLIDITAS THERAPEUTICS AB
  Company Number: US-Calliditas-2025CAL01139

PATIENT
  Age: 36 Year
  Sex: Male

DRUGS (7)
  1. TARPEYO [Suspect]
     Active Substance: BUDESONIDE
     Indication: IgA nephropathy
     Dosage: TAKE 4 CAPSULES BY MOUTH ONCE DAILY 1 HOUR PRIOR TO BREAKFAST
     Route: 048
     Dates: start: 20240621
  2. ALLOPURINOL [Concomitant]
     Active Substance: ALLOPURINOL
  3. LIPITOR [Concomitant]
     Active Substance: ATORVASTATIN CALCIUM
  4. BUMEX [Concomitant]
     Active Substance: BUMETANIDE
  5. VITAMIN B12 [Concomitant]
     Active Substance: CYANOCOBALAMIN
  6. ENTRESTO [Concomitant]
     Active Substance: SACUBITRIL\VALSARTAN
  7. ALDACTONE [Concomitant]
     Active Substance: SPIRONOLACTONE

REACTIONS (6)
  - Weight increased [Not Recovered/Not Resolved]
  - Product dose omission issue [Unknown]
  - Lipohypertrophy [Unknown]
  - Skin disorder [Unknown]
  - Weight decreased [Unknown]
  - Illness [Unknown]
